FAERS Safety Report 13498913 (Version 6)
Quarter: 2018Q1

REPORT INFORMATION
  Report Type: Spontaneous
  Country: JP (occurrence: JP)
  Receive Date: 20170501
  Receipt Date: 20180226
  Transmission Date: 20180508
  Serious: Yes (Death, Hospitalization, Other)
  Sender: FDA-Public Use
  Company Number: PHJP2017JP014598

PATIENT
  Age: 79 Year
  Sex: Female
  Weight: 42 kg

DRUGS (4)
  1. CODEINE PHOSPHATE [Concomitant]
     Active Substance: CODEINE PHOSPHATE
     Indication: CARCINOID TUMOUR PULMONARY
     Dosage: 2G, QD
     Route: 048
     Dates: start: 20170328, end: 20170423
  2. ZOLPIDEM TARTRATE. [Concomitant]
     Active Substance: ZOLPIDEM TARTRATE
     Indication: INSOMNIA
     Dosage: 5 MG, QD
     Route: 048
     Dates: start: 20151223, end: 20170423
  3. AFINITOR [Suspect]
     Active Substance: EVEROLIMUS
     Indication: CARCINOID TUMOUR PULMONARY
     Dosage: 10 MG, QD
     Route: 048
     Dates: start: 20170309, end: 20170323
  4. AFINITOR [Suspect]
     Active Substance: EVEROLIMUS
     Dosage: 5 MG, QD
     Route: 048
     Dates: start: 20170418, end: 20170422

REACTIONS (16)
  - Pyrexia [Recovered/Resolved]
  - Diarrhoea [Fatal]
  - Organ failure [Fatal]
  - Platelet count decreased [Recovered/Resolved]
  - Enterocolitis [Fatal]
  - Blood urea increased [Fatal]
  - Alanine aminotransferase increased [Fatal]
  - Depressed level of consciousness [Not Recovered/Not Resolved]
  - Blood creatinine increased [Fatal]
  - Diarrhoea [Recovered/Resolved]
  - Portal venous gas [Fatal]
  - Aspartate aminotransferase increased [Fatal]
  - Neutrophil count decreased [Recovered/Resolved]
  - Pneumatosis intestinalis [Fatal]
  - C-reactive protein increased [Fatal]
  - Platelet count decreased [Unknown]

NARRATIVE: CASE EVENT DATE: 20170309
